FAERS Safety Report 19821381 (Version 1)
Quarter: 2021Q3

REPORT INFORMATION
  Report Type: Spontaneous
  Country: US (occurrence: US)
  Receive Date: 20210913
  Receipt Date: 20210913
  Transmission Date: 20211014
  Serious: Yes (Other)
  Sender: FDA-Public Use
  Company Number: None

PATIENT
  Age: 60 Year
  Sex: Female
  Weight: 101.25 kg

DRUGS (6)
  1. ARIPIPRAZOLE. [Suspect]
     Active Substance: ARIPIPRAZOLE
     Indication: AFFECTIVE DISORDER
     Dosage: ?          QUANTITY:1 TABLET(S);?
     Route: 048
     Dates: start: 20210601, end: 20210901
  2. VITAMIN E/D [Concomitant]
  3. ARIPIPRAZOLE. [Suspect]
     Active Substance: ARIPIPRAZOLE
     Indication: ANXIETY
     Dosage: ?          QUANTITY:1 TABLET(S);?
     Route: 048
     Dates: start: 20210601, end: 20210901
  4. PROBIOTICS [Concomitant]
     Active Substance: PROBIOTICS NOS
  5. FISH OIL [Concomitant]
     Active Substance: FISH OIL
  6. ZINC. [Concomitant]
     Active Substance: ZINC

REACTIONS (2)
  - Deafness unilateral [None]
  - Tinnitus [None]

NARRATIVE: CASE EVENT DATE: 20210701
